FAERS Safety Report 6711715-4 (Version None)
Quarter: 2010Q2

REPORT INFORMATION
  Report Type: 
  Country: None (occurrence: None)
  Receive Date: 20100505
  Receipt Date: 20100427
  Transmission Date: 20101027
  Serious: Yes (Hospitalization)
  Sender: FDA-Public Use
  Company Number: US-ROCHE-700377

PATIENT
  Sex: Male
  Weight: 62 kg

DRUGS (17)
  1. BEVACIZUMAB [Suspect]
     Route: 042
     Dates: start: 20091217, end: 20100415
  2. PEMETREXED [Suspect]
     Route: 042
     Dates: start: 20091217, end: 20100415
  3. CARBOPLATIN [Suspect]
     Dosage: DOSE: 6 AUC
     Route: 042
     Dates: start: 20091217, end: 20100218
  4. FOLIC ACID [Concomitant]
     Dates: start: 20091023
  5. VITAMIN B-12 [Concomitant]
     Dates: start: 20091209
  6. LISINOPRIL [Concomitant]
  7. AMLODIPINE [Concomitant]
  8. SIMVASTATIN [Concomitant]
  9. MEGACE [Concomitant]
     Dates: start: 20091209
  10. CALCIUM [Concomitant]
     Dates: start: 20091023
  11. VICODIN [Concomitant]
     Dates: start: 20091023
  12. COMPAZINE [Concomitant]
     Dates: start: 20091217
  13. NEULASTA [Concomitant]
     Dates: start: 20091218
  14. WELLBUTRIN [Concomitant]
     Dates: start: 20100128
  15. SLOW-MAG [Concomitant]
     Dates: start: 20100107
  16. KYTRIL [Concomitant]
     Dates: start: 20091217
  17. DEXAMETHASONE [Concomitant]
     Dates: start: 20091216

REACTIONS (3)
  - DYSPHAGIA [None]
  - MALNUTRITION [None]
  - PNEUMONIA [None]
